FAERS Safety Report 9475156 (Version 1)
Quarter: 2013Q3

REPORT INFORMATION
  Report Type: Spontaneous
  Country: US (occurrence: None)
  Receive Date: 20130822
  Receipt Date: 20130822
  Transmission Date: 20140515
  Serious: No
  Sender: FDA-Public Use
  Company Number: None

PATIENT
  Age: 59 Year
  Sex: Male
  Weight: 99.79 kg

DRUGS (1)
  1. FINASTERIDE [Suspect]
     Indication: PROSTATOMEGALY
     Route: 048
     Dates: start: 20130601, end: 20130821

REACTIONS (4)
  - Prostatomegaly [None]
  - Condition aggravated [None]
  - Alanine aminotransferase increased [None]
  - Aspartate aminotransferase increased [None]
